FAERS Safety Report 6795027-9 (Version None)
Quarter: 2010Q2

REPORT INFORMATION
  Report Type: 
  Country: None (occurrence: None)
  Receive Date: 20100625
  Receipt Date: 20100614
  Transmission Date: 20101027
  Serious: Yes (Other)
  Sender: FDA-Public Use
  Company Number: PHHY2010BR38823

PATIENT
  Age: 79 Year
  Sex: Female
  Weight: 42 kg

DRUGS (4)
  1. CODATEN [Suspect]
     Indication: BLOOD PRESSURE FLUCTUATION
     Dosage: 50 MG HALF TABLET IN THE MORNING
     Route: 048
  2. AMILORIDE HCL AND HYDROCHLOROTHIAZIDE [Concomitant]
     Indication: DIURETIC THERAPY
     Dosage: HALF TABLET IN THE MORNING
     Route: 048
  3. AMILORIDE HCL AND HYDROCHLOROTHIAZIDE [Concomitant]
     Indication: KIDNEY SMALL
  4. CALCIUM CARBONATE [Concomitant]
     Indication: BONE DISORDER
     Dosage: 7 TABLETS DAILY

REACTIONS (3)
  - BLOOD PRESSURE DECREASED [None]
  - GALLBLADDER OPERATION [None]
  - SYNCOPE [None]
